FAERS Safety Report 6742974-X (Version None)
Quarter: 2010Q2

REPORT INFORMATION
  Report Type: 
  Country: None (occurrence: None)
  Receive Date: 20100527
  Receipt Date: 20100520
  Transmission Date: 20101027
  Serious: No
  Sender: FDA-Public Use
  Company Number: US-BIOGENIDEC-2010BI016776

PATIENT
  Age: 46 Year
  Sex: Female

DRUGS (2)
  1. TYSABRI [Suspect]
     Indication: MULTIPLE SCLEROSIS
     Route: 042
     Dates: start: 20071030, end: 20091026
  2. TYSABRI [Suspect]
     Dates: start: 20100301

REACTIONS (2)
  - FATIGUE [None]
  - MULTIPLE SCLEROSIS RELAPSE [None]
